FAERS Safety Report 25833220 (Version 1)
Quarter: 2025Q3

REPORT INFORMATION
  Report Type: Spontaneous
  Country: US (occurrence: None)
  Receive Date: 20250922
  Receipt Date: 20250922
  Transmission Date: 20251021
  Serious: Yes (Hospitalization)
  Sender: FDA-CTU
  Company Number: None

PATIENT
  Age: 82 Year
  Sex: Male

DRUGS (2)
  1. TAVNEOS [Suspect]
     Active Substance: AVACOPAN
     Dosage: FREQUENCY : TWICE A DAY;?
     Route: 048
     Dates: start: 20250328
  2. TAVNEOS [Concomitant]
     Active Substance: AVACOPAN
     Dates: start: 20250328

REACTIONS (3)
  - Fall [None]
  - Full blood count decreased [None]
  - Transfusion [None]

NARRATIVE: CASE EVENT DATE: 20250922
